FAERS Safety Report 23288902 (Version 4)
Quarter: 2024Q2

REPORT INFORMATION
  Report Type: Spontaneous
  Country: US (occurrence: US)
  Receive Date: 20231212
  Receipt Date: 20240417
  Transmission Date: 20240716
  Serious: No
  Sender: FDA-Public Use
  Company Number: US-Calliditas-2023CAL01586

PATIENT
  Age: 65 Year
  Sex: Male

DRUGS (16)
  1. TARPEYO [Suspect]
     Active Substance: BUDESONIDE
     Indication: IgA nephropathy
     Dosage: 16MG (4MG CAPSULES) ONCE DAILY
     Route: 048
     Dates: start: 20230509
  2. METHOTREXATE [Concomitant]
     Active Substance: METHOTREXATE
  3. FUROSEMIDE [Concomitant]
     Active Substance: FUROSEMIDE
  4. VITAMIN D NOS [Concomitant]
     Active Substance: VITAMIN D NOS
  5. LOSARTAN [Concomitant]
     Active Substance: LOSARTAN
  6. MONTELUKAST [Concomitant]
     Active Substance: MONTELUKAST SODIUM
  7. FOLIC ACID [Concomitant]
     Active Substance: FOLIC ACID
  8. LEFLUNOMIDE [Concomitant]
     Active Substance: LEFLUNOMIDE
  9. CARVEDILOL [Concomitant]
     Active Substance: CARVEDILOL
  10. TAMSULOSIN [Concomitant]
     Active Substance: TAMSULOSIN
  11. GABAPENTIN [Concomitant]
     Active Substance: GABAPENTIN
  12. PREGABALIN [Concomitant]
     Active Substance: PREGABALIN
  13. TIZANIDINE [Concomitant]
     Active Substance: TIZANIDINE
  14. OMEPRAZOLE [Concomitant]
     Active Substance: OMEPRAZOLE
  15. ALBUTEROL [Concomitant]
     Active Substance: ALBUTEROL
  16. FLONASE [Concomitant]
     Active Substance: FLUTICASONE PROPIONATE

REACTIONS (7)
  - Prescribed underdose [Unknown]
  - Pharyngeal swelling [Not Recovered/Not Resolved]
  - Dysphagia [Not Recovered/Not Resolved]
  - Dysphonia [Not Recovered/Not Resolved]
  - Venous stent insertion [Recovered/Resolved]
  - Peripheral swelling [Not Recovered/Not Resolved]
  - Muscle spasms [Not Recovered/Not Resolved]

NARRATIVE: CASE EVENT DATE: 20240404
